FAERS Safety Report 18746918 (Version 2)
Quarter: 2021Q2

REPORT INFORMATION
  Report Type: Spontaneous
  Country: US (occurrence: US)
  Receive Date: 20210115
  Receipt Date: 20210401
  Transmission Date: 20210717
  Serious: No
  Sender: FDA-Public Use
  Company Number: US-ASTRAZENECA-2021A003537

PATIENT
  Age: 932 Month
  Sex: Male
  Weight: 106.6 kg

DRUGS (4)
  1. SYMBICORT [Suspect]
     Active Substance: BUDESONIDE\FORMOTEROL FUMARATE DIHYDRATE
     Indication: PNEUMONIA
     Dosage: 160/4.5 MCG, 2 PUFFS, TWICE DAILY
     Route: 055
     Dates: start: 20201116, end: 202012
  2. SYMBICORT [Suspect]
     Active Substance: BUDESONIDE\FORMOTEROL FUMARATE DIHYDRATE
     Indication: COUGH
     Dosage: 160/4.5 MCG, 2 PUFFS, TWICE DAILY
     Route: 055
     Dates: start: 20201116, end: 202012
  3. SYMBICORT [Suspect]
     Active Substance: BUDESONIDE\FORMOTEROL FUMARATE DIHYDRATE
     Indication: COUGH
     Dosage: RESTARTED TAKING THE SYMBICORT INHALER, UNKNOWN UNKNOWN
     Route: 055
     Dates: start: 202101
  4. SYMBICORT [Suspect]
     Active Substance: BUDESONIDE\FORMOTEROL FUMARATE DIHYDRATE
     Indication: PNEUMONIA
     Dosage: RESTARTED TAKING THE SYMBICORT INHALER, UNKNOWN UNKNOWN
     Route: 055
     Dates: start: 202101

REACTIONS (5)
  - Device delivery system issue [Unknown]
  - Intentional product misuse [Not Recovered/Not Resolved]
  - Oropharyngeal discomfort [Unknown]
  - Wrong technique in device usage process [Not Recovered/Not Resolved]
  - Incorrect dose administered by device [Unknown]

NARRATIVE: CASE EVENT DATE: 202101
